FAERS Safety Report 7399786-6 (Version None)
Quarter: 2011Q2

REPORT INFORMATION
  Report Type: 
  Country: None (occurrence: None)
  Receive Date: 20110407
  Receipt Date: 20110323
  Transmission Date: 20111010
  Serious: Yes (Other)
  Sender: FDA-Public Use
  Company Number: US-JNJFOC-20100107991

PATIENT
  Sex: Female
  Weight: 58.06 kg

DRUGS (25)
  1. CORTICOSTEROIDS [Concomitant]
  2. HYDROCHLOROTHIAZIDE [Concomitant]
  3. REMICADE [Suspect]
     Route: 042
  4. SOLU-CORTEF [Concomitant]
     Route: 040
  5. OXYCONTIN [Concomitant]
  6. SOLU-CORTEF [Concomitant]
     Indication: ANAPHYLACTIC REACTION
     Route: 040
  7. VITAMIN E (TOCOPHERYL ACETATE) [Concomitant]
  8. MULTI-VITAMINS [Concomitant]
  9. FOLIC ACID [Concomitant]
  10. ZYRTEC [Concomitant]
     Indication: URTICARIA
     Route: 048
  11. SOLU-CORTEF [Concomitant]
     Route: 040
  12. SOLU-CORTEF [Concomitant]
     Indication: PREMEDICATION
     Route: 040
  13. XANAX [Concomitant]
  14. KLOR-CON [Concomitant]
  15. NEXIUM [Concomitant]
  16. BENADRYL [Concomitant]
     Indication: ANAPHYLACTIC REACTION
     Route: 040
  17. EPINEPHRINE [Concomitant]
     Indication: ANAPHYLACTIC REACTION
     Dosage: 1:1000 1CC
     Route: 040
  18. REMICADE [Suspect]
     Indication: RHEUMATOID ARTHRITIS
     Dosage: 3 MG/KG, ROUND UP DOSE; IN 250 ML NS IVPB GIVEN OVER MINIMUM OF 2 HOURS
     Route: 042
  19. CELEXA [Concomitant]
  20. CALCIUM [Concomitant]
  21. FOSAMAX [Concomitant]
  22. ACETAMINOPHEN [Concomitant]
     Indication: PREMEDICATION
  23. VASOTEC [Concomitant]
  24. PREMARIN [Concomitant]
  25. METHOTREXATE [Concomitant]

REACTIONS (2)
  - HISTOPLASMOSIS [None]
  - GASTRIC DISORDER [None]
